FAERS Safety Report 8887919 (Version 2)
Quarter: 2013Q1

REPORT INFORMATION
  Report Type: Spontaneous
  Country: US (occurrence: US)
  Receive Date: 20121106
  Receipt Date: 20130122
  Transmission Date: 20140127
  Serious: No
  Sender: FDA-Public Use
  Company Number: US-009507513-1211USA001775

PATIENT
  Age: 76 Year
  Sex: Male

DRUGS (1)
  1. ZIOPTAN [Suspect]
     Dosage: UNK
     Dates: start: 20121018

REACTIONS (1)
  - Ocular hyperaemia [Unknown]
